FAERS Safety Report 15019941 (Version 2)
Quarter: 2018Q3

REPORT INFORMATION
  Report Type: Spontaneous
  Country: KR (occurrence: KR)
  Receive Date: 20180618
  Receipt Date: 20180704
  Transmission Date: 20181010
  Serious: Yes (Other)
  Sender: FDA-Public Use
  Company Number: KR-B.I. PHARMACEUTICALS,INC./RIDGEFIELD-2018-BI-030568

PATIENT
  Age: 69 Year
  Sex: Male

DRUGS (2)
  1. GILOTRIF [Suspect]
     Active Substance: AFATINIB
     Indication: NON-SMALL CELL LUNG CANCER STAGE IV
     Route: 065
     Dates: start: 20160316, end: 20160426
  2. GILOTRIF [Suspect]
     Active Substance: AFATINIB
     Indication: ACQUIRED GENE MUTATION

REACTIONS (1)
  - Malignant neoplasm progression [Unknown]
